FAERS Safety Report 21787485 (Version 1)
Quarter: 2022Q4

REPORT INFORMATION
  Report Type: Report from Study
  Country: US (occurrence: US)
  Receive Date: 20221228
  Receipt Date: 20221228
  Transmission Date: 20230112
  Serious: No
  Sender: FDA-Public Use
  Company Number: US-ABBVIE-4251130

PATIENT
  Sex: Female

DRUGS (1)
  1. IMBRUVICA [Suspect]
     Active Substance: IBRUTINIB
     Indication: Chronic lymphocytic leukaemia
     Dosage: ALL EVENT START DATE -2022
     Route: 048
     Dates: start: 202208

REACTIONS (3)
  - Cough [Unknown]
  - Influenza [Unknown]
  - Pyrexia [Unknown]
